FAERS Safety Report 13619345 (Version 1)
Quarter: 2017Q2

REPORT INFORMATION
  Report Type: Spontaneous
  Country: US (occurrence: US)
  Receive Date: 20170606
  Receipt Date: 20170606
  Transmission Date: 20170830
  Serious: Yes (Other)
  Sender: FDA-Public Use
  Company Number: None

PATIENT
  Age: 28 Year
  Sex: Female
  Weight: 63 kg

DRUGS (11)
  1. SPIRONOLACTONE. [Concomitant]
     Active Substance: SPIRONOLACTONE
  2. MEFLOQUINE [Suspect]
     Active Substance: MEFLOQUINE
     Indication: MALARIA PROPHYLAXIS
     Dosage: ?          QUANTITY:4 TABLET(S);OTHER FREQUENCY:1X / WEEK;?
     Route: 048
     Dates: start: 20140716, end: 20140806
  3. LVR [Concomitant]
  4. PROBIOTIC [Concomitant]
     Active Substance: PROBIOTICS NOS
  5. B6 [Concomitant]
     Active Substance: PYRIDOXINE HYDROCHLORIDE
  6. VITAMIN B12 [Concomitant]
     Active Substance: CYANOCOBALAMIN
  7. B2 [Concomitant]
  8. ZINC. [Concomitant]
     Active Substance: ZINC
  9. D [Concomitant]
  10. CHASTE TREE [Concomitant]
  11. C [Concomitant]

REACTIONS (13)
  - Vertigo [None]
  - Anger [None]
  - Paranoia [None]
  - Panic attack [None]
  - Agoraphobia [None]
  - Anxiety [None]
  - Social anxiety disorder [None]
  - Feeling abnormal [None]
  - Confusional state [None]
  - Depersonalisation/derealisation disorder [None]
  - Insomnia [None]
  - Depression [None]
  - Vestibular disorder [None]

NARRATIVE: CASE EVENT DATE: 20140810
